FAERS Safety Report 13344934 (Version 2)
Quarter: 2017Q2

REPORT INFORMATION
  Report Type: Spontaneous
  Country: US (occurrence: US)
  Receive Date: 20170317
  Receipt Date: 20170411
  Transmission Date: 20170830
  Serious: No
  Sender: FDA-Public Use
  Company Number: US-ASTRAZENECA-2017SE25809

PATIENT
  Sex: Female

DRUGS (7)
  1. PULMICORT FLEXHALER [Suspect]
     Active Substance: BUDESONIDE
     Indication: RESPIRATORY DISORDER
     Route: 055
     Dates: start: 20170126
  2. PULMICORT FLEXHALER [Suspect]
     Active Substance: BUDESONIDE
     Indication: COUGH
     Route: 055
     Dates: start: 20170126
  3. XARELTO [Concomitant]
     Active Substance: RIVAROXABAN
     Route: 048
     Dates: start: 20170106
  4. SERTRALINE [Concomitant]
     Active Substance: SERTRALINE HYDROCHLORIDE
     Route: 048
     Dates: start: 201604
  5. DILTIAZEM. [Concomitant]
     Active Substance: DILTIAZEM
     Route: 048
  6. DIOVAN [Concomitant]
     Active Substance: VALSARTAN
     Route: 048
  7. ATORVASTATIN [Concomitant]
     Active Substance: ATORVASTATIN
     Indication: BLOOD CHOLESTEROL ABNORMAL
     Route: 048

REACTIONS (5)
  - Cough [Unknown]
  - Drug dose omission [Unknown]
  - Device malfunction [Unknown]
  - Respiratory disorder [Unknown]
  - Intentional product misuse [Unknown]
